FAERS Safety Report 18545425 (Version 5)
Quarter: 2022Q3

REPORT INFORMATION
  Report Type: Report from Study
  Country: JP (occurrence: None)
  Receive Date: 20201125
  Receipt Date: 20220708
  Transmission Date: 20221027
  Serious: Yes (Death, Other)
  Sender: FDA-Public Use
  Company Number: 2020SF54477

PATIENT
  Age: 68 Year
  Sex: Male
  Weight: 81 kg

DRUGS (7)
  1. IMFINZI [Suspect]
     Active Substance: DURVALUMAB
     Indication: Non-small cell lung cancer
     Route: 042
     Dates: start: 20201020, end: 20201020
  2. KEYTRUDA [Suspect]
     Active Substance: PEMBROLIZUMAB
     Route: 065
  3. OPDIVO [Suspect]
     Active Substance: NIVOLUMAB
     Route: 065
  4. TECENTRIQ [Suspect]
     Active Substance: ATEZOLIZUMAB
     Route: 065
  5. BAVENCIO [Suspect]
     Active Substance: AVELUMAB
     Route: 065
  6. LIVALO [Concomitant]
     Active Substance: PITAVASTATIN CALCIUM
     Indication: Hypertriglyceridaemia
     Dosage: UNK
     Route: 048
     Dates: start: 20201112
  7. ACETAMINOPHEN [Concomitant]
     Active Substance: ACETAMINOPHEN
     Dosage: UNKNOWN
     Route: 065
     Dates: start: 20200614, end: 20201113

REACTIONS (7)
  - Hepatic failure [Fatal]
  - Multiple organ dysfunction syndrome [Fatal]
  - Sepsis [Unknown]
  - Lactic acidosis [Unknown]
  - Hyperplastic cholecystopathy [Unknown]
  - Gallbladder enlargement [Unknown]
  - Cholelithiasis [Unknown]

NARRATIVE: CASE EVENT DATE: 20201101
